FAERS Safety Report 7409410-1 (Version None)
Quarter: 2011Q2

REPORT INFORMATION
  Report Type: 
  Country: None (occurrence: None)
  Receive Date: 20110412
  Receipt Date: 20110321
  Transmission Date: 20111010
  Serious: Yes (Hospitalization, Other)
  Sender: FDA-Public Use
  Company Number: US-BAYER-201039663NA

PATIENT
  Age: 41 Year
  Sex: Female
  Weight: 66 kg

DRUGS (3)
  1. YASMIN [Suspect]
     Indication: CONTRACEPTION
     Dosage: 1 DF, QD
     Dates: start: 20030101, end: 20031201
  2. COUMADIN [Concomitant]
     Indication: PULMONARY EMBOLISM
  3. YASMIN [Suspect]
     Indication: ACNE

REACTIONS (1)
  - PULMONARY EMBOLISM [None]
